FAERS Safety Report 11840515 (Version 1)
Quarter: 2015Q4

REPORT INFORMATION
  Report Type: Spontaneous
  Country: US (occurrence: None)
  Receive Date: 20151215
  Receipt Date: 20151215
  Transmission Date: 20160305
  Serious: Yes (Other)
  Sender: FDA-Public Use
  Company Number: None

PATIENT
  Age: 28 Year
  Sex: Male
  Weight: 82.1 kg

DRUGS (3)
  1. THRIVE THRIVE DFT PATCH LE-VEL [Suspect]
     Active Substance: DIETARY SUPPLEMENT
     Dosage: APPLIED AS MEDICATED PATCH TO SKIN
     Route: 061
     Dates: start: 20151202, end: 20151205
  2. THRIVE THRIVE PREMIUM LIFESTYLE CAPSULE LE-VEL [Suspect]
     Active Substance: DIETARY SUPPLEMENT
     Dosage: 1-2 PILLS ?
     Route: 048
     Dates: start: 20151202, end: 20151205
  3. ULTRAMIX SHAKE [Concomitant]

REACTIONS (10)
  - Blood pressure increased [None]
  - Diarrhoea [None]
  - Memory impairment [None]
  - Nausea [None]
  - Myalgia [None]
  - Mental impairment [None]
  - Fatigue [None]
  - Fall [None]
  - Pruritus generalised [None]
  - Impaired work ability [None]

NARRATIVE: CASE EVENT DATE: 20151205
